FAERS Safety Report 6475811-1 (Version None)
Quarter: 2009Q4

REPORT INFORMATION
  Report Type: 
  Country: None (occurrence: None)
  Receive Date: 20091204
  Receipt Date: 20091202
  Transmission Date: 20100525
  Serious: Yes (Life-Threatening, Hospitalization, Disabling)
  Sender: FDA-Public Use
  Company Number: US-GENENTECH-231989

PATIENT
  Sex: Female
  Weight: 150.2 kg

DRUGS (19)
  1. OMALIZUMAB [Suspect]
     Indication: ASTHMA
     Dosage: 375 UNK, Q2W
     Route: 058
     Dates: start: 20050126
  2. ALBUTEROL [Concomitant]
     Indication: ASTHMA
     Dosage: 90 PUFF, UNK
     Dates: start: 20040101
  3. PREVACID [Concomitant]
     Indication: GASTROOESOPHAGEAL REFLUX DISEASE
     Dosage: 30 MG, UNK
     Dates: start: 20040101
  4. PULMICORT [Concomitant]
     Indication: DRUG USE FOR UNKNOWN INDICATION
     Dosage: 200 PUFF, UNK
     Dates: start: 20060926
  5. CLARITIN [Concomitant]
     Indication: DRUG USE FOR UNKNOWN INDICATION
  6. RHINOCORT [Concomitant]
     Indication: DRUG USE FOR UNKNOWN INDICATION
  7. ADVAIR DISKUS 100/50 [Concomitant]
     Indication: DRUG USE FOR UNKNOWN INDICATION
     Dosage: UNK, UNK
  8. SINGULAIR [Concomitant]
     Indication: DRUG USE FOR UNKNOWN INDICATION
  9. ASMANEX TWISTHALER [Concomitant]
     Indication: DRUG USE FOR UNKNOWN INDICATION
  10. CLARINEX [Concomitant]
     Indication: DRUG USE FOR UNKNOWN INDICATION
  11. SPIRIVA [Concomitant]
     Indication: DRUG USE FOR UNKNOWN INDICATION
  12. VITAMIN AND MINERAL PRENATAL SUPPLEMENT W/ FOLIC ACID CAP [Concomitant]
     Indication: PREGNANCY
     Route: 048
  13. MOTRIN [Concomitant]
     Indication: DRUG USE FOR UNKNOWN INDICATION
     Dosage: 800 MG, TID
     Route: 048
  14. QVAR 40 [Concomitant]
     Indication: ASTHMA
  15. VICODIN [Concomitant]
     Indication: DRUG USE FOR UNKNOWN INDICATION
     Dosage: UNK, PRN
     Route: 048
  16. CHROMAGEN [Concomitant]
     Indication: DRUG USE FOR UNKNOWN INDICATION
     Dosage: UNK, QD
     Route: 048
  17. ALBUTEROL [Concomitant]
     Indication: ASTHMA
  18. KEFLEX [Concomitant]
     Indication: CYSTITIS
     Dosage: 500 MG, UNK
     Route: 048
     Dates: start: 20070404
  19. FLAGYL [Concomitant]
     Indication: SEXUALLY TRANSMITTED DISEASE
     Dosage: 2 G, UNK
     Route: 048
     Dates: start: 20070404

REACTIONS (4)
  - ASTHMA [None]
  - CAESAREAN SECTION [None]
  - DRUG EXPOSURE DURING PREGNANCY [None]
  - PRE-ECLAMPSIA [None]
